FAERS Safety Report 13121207 (Version 1)
Quarter: 2017Q1

REPORT INFORMATION
  Report Type: Spontaneous
  Country: US (occurrence: US)
  Receive Date: 20170113
  Receipt Date: 20170113
  Transmission Date: 20170428
  Serious: Yes (Life-Threatening, Hospitalization, Other)
  Sender: FDA-Public Use
  Company Number: None

PATIENT
  Age: 61 Year
  Sex: Male
  Weight: 126 kg

DRUGS (15)
  1. LIPITOR [Concomitant]
     Active Substance: ATORVASTATIN CALCIUM
  2. SPIRIVA [Concomitant]
     Active Substance: TIOTROPIUM BROMIDE MONOHYDRATE
  3. PRADAXA [Concomitant]
     Active Substance: DABIGATRAN ETEXILATE MESYLATE
  4. DOCUSATE SODIUM. [Concomitant]
     Active Substance: DOCUSATE SODIUM
  5. PREVENTIL HFA [Concomitant]
  6. OXYGEN. [Concomitant]
     Active Substance: OXYGEN
  7. ADVAIR HFA [Concomitant]
     Active Substance: FLUTICASONE PROPIONATE\SALMETEROL XINAFOATE
  8. FLOMAX [Concomitant]
     Active Substance: TAMSULOSIN HYDROCHLORIDE
  9. RANITINE HCL [Concomitant]
  10. VITAMIN D [Concomitant]
     Active Substance: CHOLECALCIFEROL
  11. EDARBI [Suspect]
     Active Substance: AZILSARTAN KAMEDOXOMIL
     Indication: HYPERTENSION
     Route: 048
     Dates: start: 20161221, end: 20161221
  12. VITAMIN B12 [Concomitant]
     Active Substance: CYANOCOBALAMIN
  13. GABAPENTIN. [Concomitant]
     Active Substance: GABAPENTIN
  14. TORSEMIDE. [Concomitant]
     Active Substance: TORSEMIDE
  15. EPLERENONE. [Concomitant]
     Active Substance: EPLERENONE

REACTIONS (7)
  - Cardiac disorder [None]
  - Heart rate increased [None]
  - Cardiac pacemaker insertion [None]
  - Blood pressure decreased [None]
  - Visual impairment [None]
  - Hallucination [None]
  - Fluid overload [None]

NARRATIVE: CASE EVENT DATE: 20161222
